FAERS Safety Report 13325755 (Version 1)
Quarter: 2017Q1

REPORT INFORMATION
  Report Type: Report from Study
  Country: None (occurrence: DK)
  Receive Date: 20170310
  Receipt Date: 20170310
  Transmission Date: 20170428
  Serious: Yes (Hospitalization)
  Sender: FDA-Public Use
  Company Number: DK-ABBVIE-17P-044-1866815-00

PATIENT
  Age: 69 Year
  Sex: Female

DRUGS (33)
  1. ALLOPURINOL. [Concomitant]
     Active Substance: ALLOPURINOL
     Indication: PROPHYLAXIS
  2. ACICLOVIR [Concomitant]
     Active Substance: ACYCLOVIR
     Indication: HERPES VIRUS INFECTION
     Route: 048
     Dates: start: 20120107
  3. VENETOCLAX [Suspect]
     Active Substance: VENETOCLAX
     Route: 048
     Dates: start: 20161215, end: 20161221
  4. VENETOCLAX [Suspect]
     Active Substance: VENETOCLAX
     Route: 048
     Dates: start: 20170213
  5. NORMAL SALINE SOLUTION (0.9% SODIUM CHLORIDE) [Concomitant]
     Indication: TUMOUR LYSIS SYNDROME
     Dates: start: 20161123, end: 20161124
  6. ISOTON GLUCOSE [Concomitant]
     Indication: PROPHYLAXIS
     Dates: start: 20161214, end: 20161214
  7. TERBUTALIN [Concomitant]
     Active Substance: TERBUTALINE
     Indication: ASTHMA
     Route: 055
     Dates: start: 20160606
  8. VENETOCLAX [Suspect]
     Active Substance: VENETOCLAX
     Route: 048
     Dates: start: 20170105, end: 20170209
  9. ALLOPURINOL. [Concomitant]
     Active Substance: ALLOPURINOL
     Indication: TUMOUR LYSIS SYNDROME
     Route: 048
     Dates: start: 20161114
  10. NORMAL SALINE SOLUTION (0.9% SODIUM CHLORIDE) [Concomitant]
     Indication: PROPHYLAXIS
     Dates: start: 20161207, end: 20161208
  11. ACICLOVIR [Concomitant]
     Active Substance: ACYCLOVIR
     Indication: PROPHYLAXIS
  12. NORMAL SALINE SOLUTION (0.9% SODIUM CHLORIDE) [Concomitant]
     Dates: start: 20170104, end: 20170105
  13. DOMPERIDON [Concomitant]
     Active Substance: DOMPERIDONE
     Indication: NAUSEA
     Route: 048
     Dates: start: 20161124
  14. PARACETAMOL [Concomitant]
     Active Substance: ACETAMINOPHEN
     Indication: PAIN
     Route: 048
     Dates: start: 20161128
  15. PREDNISOLON [Concomitant]
     Active Substance: PREDNISOLONE
     Indication: ARTHRITIS
     Route: 048
     Dates: start: 20161128
  16. VENETOCLAX [Suspect]
     Active Substance: VENETOCLAX
     Route: 048
     Dates: start: 20161222, end: 20161228
  17. NORMAL SALINE SOLUTION (0.9% SODIUM CHLORIDE) [Concomitant]
     Dates: start: 20161228, end: 20161229
  18. ISOTON GLUCOSE [Concomitant]
     Indication: TUMOUR LYSIS SYNDROME
     Dates: start: 20161123, end: 20161123
  19. ISOTON GLUCOSE [Concomitant]
     Indication: FLUID REPLACEMENT
     Dates: start: 20161221, end: 20161222
  20. ISOTON GLUCOSE [Concomitant]
     Dates: start: 20161228, end: 20161228
  21. BUDESONID [Concomitant]
     Active Substance: BUDESONIDE
     Indication: ASTHMA
     Route: 055
     Dates: start: 20160202
  22. TRAMADOL. [Concomitant]
     Active Substance: TRAMADOL
     Indication: OEDEMA
     Route: 048
     Dates: start: 20161128
  23. BENDROFLUMETHIAZIDE [Concomitant]
     Active Substance: BENDROFLUMETHIAZIDE
     Indication: OEDEMA
     Dosage: 2,5 + 375MG
     Route: 048
     Dates: start: 20161213, end: 20170123
  24. VENETOCLAX [Suspect]
     Active Substance: VENETOCLAX
     Indication: CHRONIC LYMPHOCYTIC LEUKAEMIA
     Route: 048
     Dates: start: 20161114, end: 20161214
  25. PREDNISOLON [Concomitant]
     Active Substance: PREDNISOLONE
     Indication: HAEMOLYSIS
     Route: 048
     Dates: start: 20170123
  26. VENETOCLAX [Suspect]
     Active Substance: VENETOCLAX
     Route: 048
     Dates: start: 20161229, end: 20170104
  27. CALCIUM WITH D-VITAMIN [Concomitant]
     Indication: OSTEOPOROSIS PROPHYLAXIS
     Dosage: 400 + 19 (MG+ MICRO)
     Route: 048
     Dates: start: 20150731
  28. ALGINSYRE [Concomitant]
     Indication: BLOOD CALCIUM DECREASED
     Route: 048
     Dates: start: 20161124
  29. PREDNISOLON [Concomitant]
     Active Substance: PREDNISOLONE
     Indication: PAIN
     Route: 048
     Dates: start: 20161230, end: 20170102
  30. ZOPLICONE [Concomitant]
     Active Substance: ZOPICLONE
     Indication: INSOMNIA
     Route: 048
     Dates: start: 20161129
  31. NORMAL SALINE SOLUTION (0.9% SODIUM CHLORIDE) [Concomitant]
     Indication: FLUID REPLACEMENT
     Dates: start: 20161214, end: 20161216
  32. ONDANSETRON [Concomitant]
     Active Substance: ONDANSETRON
     Indication: NAUSEA
     Route: 048
     Dates: start: 20161124
  33. FUROSEMID [Concomitant]
     Active Substance: FUROSEMIDE
     Indication: OEDEMA PERIPHERAL
     Route: 048
     Dates: start: 20161129

REACTIONS (1)
  - Escherichia infection [Recovered/Resolved]

NARRATIVE: CASE EVENT DATE: 20170205
